FAERS Safety Report 14356164 (Version 2)
Quarter: 2018Q1

REPORT INFORMATION
  Report Type: Spontaneous
  Country: CA (occurrence: CA)
  Receive Date: 20180105
  Receipt Date: 20180223
  Transmission Date: 20180509
  Serious: Yes (Other)
  Sender: FDA-Public Use
  Company Number: CA-SHIRE-CA201735632

PATIENT

DRUGS (4)
  1. VYVANSE [Suspect]
     Active Substance: LISDEXAMFETAMINE DIMESYLATE
     Indication: DISTURBANCE IN ATTENTION
     Dosage: UNK, 1X/DAY:QD
     Route: 048
     Dates: start: 201412
  2. CALCITRIOL. [Suspect]
     Active Substance: CALCITRIOL
     Indication: POST PROCEDURAL COMPLICATION
     Dosage: UNK, 2X/DAY:BID
     Route: 048
     Dates: start: 20111201
  3. CALCITRIOL. [Suspect]
     Active Substance: CALCITRIOL
     Indication: HYPOPARATHYROIDISM
     Dosage: 0.25 ?G, 1X/DAY:QD
     Route: 048
  4. LEVOTHYROXINE. [Concomitant]
     Active Substance: LEVOTHYROXINE
     Indication: PRODUCT USED FOR UNKNOWN INDICATION

REACTIONS (5)
  - Asthenia [Unknown]
  - Nausea [Unknown]
  - Hypercalcaemia [Unknown]
  - Tachycardia [Unknown]
  - Vomiting [Unknown]

NARRATIVE: CASE EVENT DATE: 20150607
